FAERS Safety Report 6033032-0 (Version None)
Quarter: 2008Q4

REPORT INFORMATION
  Report Type: 
  Country: None (occurrence: None)
  Receive Date: 20081224
  Receipt Date: 20081103
  Transmission Date: 20090506
  Serious: No
  Sender: FDA-Public Use
  Company Number: 2008PV037033

PATIENT
  Age: 54 Year
  Sex: Female
  Weight: 113.3993 kg

DRUGS (5)
  1. SYMLIN [Suspect]
     Indication: TYPE 2 DIABETES MELLITUS
     Dosage: 120 MCG;TID;SC; 60 MCG;TID
     Route: 058
     Dates: start: 20071001, end: 20071216
  2. SYMLIN [Suspect]
     Indication: TYPE 2 DIABETES MELLITUS
     Dosage: 120 MCG;TID;SC; 60 MCG;TID
     Route: 058
     Dates: start: 20071217, end: 20080101
  3. SYMLIN [Suspect]
     Indication: TYPE 2 DIABETES MELLITUS
     Dosage: 120 MCG;TID;SC
     Route: 058
     Dates: start: 20080101
  4. ACTOPLUS MET [Concomitant]
  5. BYETTA [Concomitant]

REACTIONS (4)
  - DRUG INEFFECTIVE [None]
  - DRUG PRESCRIBING ERROR [None]
  - TREMOR [None]
  - WEIGHT INCREASED [None]
